FAERS Safety Report 19224010 (Version 3)
Quarter: 2021Q2

REPORT INFORMATION
  Report Type: Spontaneous
  Country: IN (occurrence: IN)
  Receive Date: 20210505
  Receipt Date: 20210630
  Transmission Date: 20210717
  Serious: Yes (Other)
  Sender: FDA-Public Use
  Company Number: IN-PFIZER INC-2021448025

PATIENT
  Age: 41 Year
  Sex: Male

DRUGS (1)
  1. LORBRIQUA [Suspect]
     Active Substance: LORLATINIB
     Dosage: 100 MG, 1X/DAY
     Route: 048
     Dates: start: 20210401

REACTIONS (5)
  - Cognitive disorder [Unknown]
  - Aggression [Unknown]
  - Insomnia [Unknown]
  - Hallucination [Unknown]
  - Hallucination, visual [Unknown]
